FAERS Safety Report 8322142-0 (Version None)
Quarter: 2012Q2

REPORT INFORMATION
  Report Type: 
  Country: None (occurrence: None)
  Receive Date: 20120426
  Receipt Date: 20120417
  Transmission Date: 20120825
  Serious: Yes (Hospitalization)
  Sender: FDA-Public Use
  Company Number: 2012SP020488

PATIENT
  Age: 34 Year
  Sex: Female

DRUGS (4)
  1. MIRTAZAPINE [Suspect]
     Indication: PRODUCT USED FOR UNKNOWN INDICATION
  2. PEG-INTRON [Suspect]
     Indication: HEPATITIS C
     Dosage: 150 MCG;QW;
     Dates: start: 20110701
  3. REBETOL [Suspect]
     Indication: HEPATITIS C
     Dosage: 1200 MG;QD;
     Dates: start: 20110701
  4. VICTRELIS [Suspect]
     Indication: HEPATITIS C
     Dosage: 2400 MG;QD;
     Dates: start: 20110812

REACTIONS (2)
  - HEADACHE [None]
  - PAIN [None]
